FAERS Safety Report 14973850 (Version 1)
Quarter: 2018Q2

REPORT INFORMATION
  Report Type: Spontaneous
  Country: DE (occurrence: DE)
  Receive Date: 20180605
  Receipt Date: 20180605
  Transmission Date: 20180711
  Serious: Yes (Other)
  Sender: FDA-Public Use
  Company Number: DE-JNJFOC-20180538030

PATIENT
  Sex: Female

DRUGS (2)
  1. MONURIL [Interacting]
     Active Substance: FOSFOMYCIN SODIUM
     Indication: URINARY TRACT INFECTION
     Route: 065
  2. ORTHO EVRA [Suspect]
     Active Substance: ETHINYL ESTRADIOL\NORELGESTROMIN
     Indication: CONTRACEPTION
     Route: 062

REACTIONS (2)
  - Urinary tract infection [Unknown]
  - Drug interaction [Unknown]
